FAERS Safety Report 15020049 (Version 2)
Quarter: 2018Q4

REPORT INFORMATION
  Report Type: Other
  Country: DK (occurrence: DK)
  Receive Date: 20180618
  Receipt Date: 20181120
  Transmission Date: 20190204
  Serious: Yes (Disabling)
  Sender: FDA-Public Use
  Company Number: DK-STRIDES ARCOLAB LIMITED-2018SP004986

PATIENT
  Age: 52 Year
  Sex: Female

DRUGS (2)
  1. EUTHYROX [Concomitant]
     Active Substance: LEVOTHYROXINE SODIUM
     Indication: HYPOTHYROIDISM
     Dosage: 50 ?G PER DAY
     Route: 048
     Dates: start: 20130612
  2. VANCOMYCIN [Suspect]
     Active Substance: VANCOMYCIN
     Indication: CLOSTRIDIUM DIFFICILE COLITIS
     Dosage: UNK
     Route: 048
     Dates: start: 20170228, end: 20170314

REACTIONS (5)
  - Vision blurred [Unknown]
  - Visual impairment [Not Recovered/Not Resolved]
  - Vitrectomy [Unknown]
  - Retinal detachment [Recovered/Resolved]
  - Retinal tear [Unknown]

NARRATIVE: CASE EVENT DATE: 201704
